FAERS Safety Report 23206375 (Version 2)
Quarter: 2023Q4

REPORT INFORMATION
  Report Type: Report from Study
  Country: CA (occurrence: CA)
  Receive Date: 20231120
  Receipt Date: 20231121
  Transmission Date: 20240110
  Serious: Yes (Other)
  Sender: FDA-Public Use
  Company Number: CA-SANDOZ-SDZ2023CA055950

PATIENT
  Sex: Female

DRUGS (1)
  1. HYRIMOZ [Suspect]
     Active Substance: ADALIMUMAB-ADAZ
     Indication: Psoriatic arthropathy
     Dosage: 40 MG
     Route: 058
     Dates: start: 20231010

REACTIONS (6)
  - Immunosuppression [Unknown]
  - Lung disorder [Unknown]
  - Gingival pain [Unknown]
  - Hyperaesthesia teeth [Unknown]
  - Influenza [Unknown]
  - Cough [Not Recovered/Not Resolved]
